FAERS Safety Report 4483519-7 (Version None)
Quarter: 2004Q4

REPORT INFORMATION
  Report Type: 
  Country: None (occurrence: None)
  Receive Date: 20041019
  Receipt Date: 20041019
  Transmission Date: 20050328
  Serious: Yes (Other)
  Sender: FDA-Public Use
  Company Number: None

PATIENT
  Age: 51 Year
  Sex: Female
  Weight: 107.9561 kg

DRUGS (1)
  1. PAXIL CR [Suspect]
     Indication: DEPRESSION
     Dosage: ONCE PER DAY ORAL
     Route: 048

REACTIONS (15)
  - ANGER [None]
  - ANOREXIA [None]
  - BODY TEMPERATURE FLUCTUATION [None]
  - COGNITIVE DISORDER [None]
  - CRYING [None]
  - DRUG WITHDRAWAL SYNDROME [None]
  - FATIGUE [None]
  - FEELING ABNORMAL [None]
  - HEADACHE [None]
  - IMPATIENCE [None]
  - IRRITABILITY [None]
  - LOSS OF LIBIDO [None]
  - MYALGIA [None]
  - PYREXIA [None]
  - WEIGHT INCREASED [None]
